FAERS Safety Report 8385648-4 (Version None)
Quarter: 2012Q2

REPORT INFORMATION
  Report Type: 
  Country: None (occurrence: None)
  Receive Date: 20120525
  Receipt Date: 20120518
  Transmission Date: 20120825
  Serious: Yes (Other)
  Sender: FDA-Public Use
  Company Number: US-PFIZER INC-2012053633

PATIENT
  Sex: Female
  Weight: 112.22 kg

DRUGS (23)
  1. VIBRAMYCIN [Concomitant]
     Dosage: 100 MG, 2X/DAY (TAKE 1 CAP BY MOUTH TWICE DAILY)
     Route: 048
     Dates: start: 20110916
  2. ALLEGRA [Concomitant]
     Dosage: 180 MG, 1X/DAY, 1 TAB
     Route: 048
     Dates: start: 20110912
  3. ZANTAC [Concomitant]
     Dosage: 150 MG, 2X/DAY
     Route: 048
     Dates: start: 20110216
  4. LORTAB [Concomitant]
     Dosage: 7.5-500MG 1 CAPSULE EVERY 6 HOURS AS NEEDED
     Route: 048
     Dates: start: 20110916
  5. SYMBICORT [Concomitant]
     Dosage: 2 PUFFS TWICE DAILY
     Route: 055
     Dates: start: 20110912
  6. SYNTHROID [Concomitant]
     Dosage: 150 UG, 1X/DAY, 1 TAB
     Route: 048
     Dates: start: 20110912
  7. VITAMIN D [Concomitant]
     Dosage: 2000 UNITS, 1X/DAY
     Route: 048
     Dates: start: 20110720
  8. IPRATROPIUM BROMIDE AND ALBUTEROL SULFATE [Concomitant]
     Indication: WHEEZING
     Dosage: EVERY 6 HOURS AS NEEDED
     Route: 055
     Dates: start: 20100913
  9. GLUCOPHAGE [Concomitant]
     Dosage: 1000 MG, 2X/DAY
     Route: 048
     Dates: start: 20111018
  10. NEXIUM [Concomitant]
     Dosage: 40 MG, 1X/DAY BEFORE BREAKFAST
     Route: 048
     Dates: start: 20110912
  11. FEOSOL [Concomitant]
     Dosage: 325 MG, 2X/DAY, WITH FOOD
     Route: 048
     Dates: start: 20110512
  12. CELEBREX [Suspect]
     Dosage: 200 MG, 1X/DAY
     Route: 048
     Dates: start: 20110916
  13. NEURONTIN [Suspect]
     Dosage: 600 MG, 3X/DAY
     Route: 048
     Dates: start: 20100913
  14. SPIRIVA [Concomitant]
     Dosage: 18 UG, 1X/DAY
     Route: 055
     Dates: start: 20110912
  15. CARDIZEM [Concomitant]
     Dosage: 90 MG, 2X/DAY
     Route: 048
     Dates: start: 20110317
  16. NASACORT AQ [Concomitant]
     Dosage: 2 SPRAYS ONCE DAILY
     Route: 045
     Dates: start: 20110912
  17. PROVENTIL GENTLEHALER [Concomitant]
     Dosage: 2 PUFFS AS NEEDED EVERY 6 HOURS AS NEEDED)
     Route: 055
     Dates: start: 20110912
  18. SINGULAIR [Concomitant]
     Dosage: 10 MG, 1X/DAY EVERY EVENING
     Route: 048
     Dates: start: 20110912
  19. CRESTOR [Concomitant]
     Dosage: 20 MG, 1X/DAY EVERY EVENING
     Route: 048
     Dates: start: 20110620
  20. VITAMIN B-12 [Concomitant]
     Dosage: 1000 UG/ML, MONTHLY
     Route: 030
     Dates: start: 20110715
  21. LOZOL [Concomitant]
     Dosage: 2.5 MG, 1X/DAY
     Route: 048
     Dates: start: 20100913
  22. VENTOLIN [Concomitant]
     Dosage: 2 PUFFS EVERY 6 HOURS AS NEEDED
     Dates: start: 20110921
  23. MOTRIN [Concomitant]
     Indication: PAIN
     Dosage: 800 MG, THREE TIMES A DAY AS NEEDED
     Route: 048
     Dates: start: 20111006

REACTIONS (2)
  - FALL [None]
  - WRIST FRACTURE [None]
